FAERS Safety Report 14095581 (Version 2)
Quarter: 2018Q1

REPORT INFORMATION
  Report Type: Report from Study
  Country: ES (occurrence: ES)
  Receive Date: 20171017
  Receipt Date: 20180328
  Transmission Date: 20180508
  Serious: Yes (Death, Hospitalization, Other)
  Sender: FDA-Public Use
  Company Number: ES-ROCHE-1903414

PATIENT
  Age: 73 Year
  Sex: Female

DRUGS (7)
  1. PACLITAXEL. [Suspect]
     Active Substance: PACLITAXEL
     Indication: BREAST CANCER METASTATIC
     Dosage: STRENGTH: 6 MG/ML
     Route: 042
     Dates: start: 20170124
  2. BEVACIZUMAB. [Suspect]
     Active Substance: BEVACIZUMAB
     Indication: BREAST CANCER METASTATIC
     Dosage: STRENGTH: 25 MG/ML
     Route: 042
     Dates: start: 20170124
  3. CITALOPRAM [Concomitant]
     Active Substance: CITALOPRAM HYDROBROMIDE
     Indication: MENTAL DISORDER
     Route: 048
  4. ASPIRIN. [Concomitant]
     Active Substance: ASPIRIN
     Indication: OSTEOARTHRITIS
     Route: 048
  5. ENALAPRIL [Concomitant]
     Active Substance: ENALAPRIL
     Indication: HYPERTENSION
     Route: 048
  6. PRAMIPEXOL [Concomitant]
     Active Substance: PRAMIPEXOLE
     Indication: MENTAL DISORDER
     Route: 048
  7. CARBIDOPA/LEVODOPA [Concomitant]
     Active Substance: CARBIDOPA\LEVODOPA
     Indication: PARKINSON^S DISEASE
     Dosage: 25 MG/100 MG
     Route: 048

REACTIONS (9)
  - Abdominal pain [Recovering/Resolving]
  - Nasopharyngitis [Recovering/Resolving]
  - Neutrophil count decreased [Fatal]
  - Diarrhoea [Recovering/Resolving]
  - Fatigue [Recovering/Resolving]
  - Platelet count decreased [Recovered/Resolved]
  - Neutropenia [Recovered/Resolved]
  - Nausea [Recovering/Resolving]
  - Pyrexia [Recovered/Resolved]

NARRATIVE: CASE EVENT DATE: 20170222
